FAERS Safety Report 4328020-6 (Version None)
Quarter: 2004Q1

REPORT INFORMATION
  Report Type: 
  Country: None (occurrence: None)
  Receive Date: 20040325
  Receipt Date: 20040312
  Transmission Date: 20041129
  Serious: Yes (Hospitalization)
  Sender: FDA-Public Use
  Company Number: DE-JNJFOC-20040302942

PATIENT
  Age: 78 Year
  Sex: Female

DRUGS (8)
  1. TRAMAL (TRAMADOL HYDROCHLORIDE) SUSTAINED RELEASE TABLETS [Suspect]
     Indication: BACK PAIN
     Dosage: 150 MG, 1 IN 1 AS NECESSARY, ORAL
     Route: 048
     Dates: start: 20030801, end: 20030818
  2. BEZABETA RETARD (BEZAFIBRATE) [Suspect]
     Indication: LIPID METABOLISM DISORDER
     Dosage: 400 MG, 1 IN 1 DAY,ORAL
     Route: 048
     Dates: start: 19970101, end: 20030812
  3. VERABETA (VERAPAMIL HYDROCHLORIDE) [Suspect]
     Indication: ATRIAL FIBRILLATION
     Dosage: 120 MG, 1 IN 1 DAY,ORAL
     Route: 048
     Dates: start: 19970101
  4. FALITHROM (PHENPROCOUMON) [Suspect]
     Indication: ATRIAL FIBRILLATION
     Dosage: 1.5 MG, 1 IN 1 DAY,ORAL
     Route: 048
     Dates: start: 20010101, end: 20030812
  5. BISOMERCK (BISOPROLOL FUMARATE) [Concomitant]
  6. CALCIGEN D (CALCENO D) [Concomitant]
  7. CAPO ISIS (CAPTOPRIL) [Concomitant]
  8. NOVALDIN INJ [Concomitant]

REACTIONS (15)
  - ACTIVATED PARTIAL THROMBOPLASTIN TIME PROLONGED [None]
  - ALANINE AMINOTRANSFERASE INCREASED [None]
  - ANTITHROMBIN III INCREASED [None]
  - ASPARTATE AMINOTRANSFERASE INCREASED [None]
  - BLOOD CREATININE INCREASED [None]
  - DRUG INTERACTION [None]
  - GASTRIC ULCER HAEMORRHAGE [None]
  - GASTRITIS EROSIVE [None]
  - GASTRITIS HAEMORRHAGIC [None]
  - HAEMATOCRIT DECREASED [None]
  - HAEMOGLOBIN DECREASED [None]
  - HAEMORRHAGE SUBEPIDERMAL [None]
  - INTERNATIONAL NORMALISED RATIO INCREASED [None]
  - PROTHROMBIN TIME PROLONGED [None]
  - WHITE BLOOD CELL COUNT INCREASED [None]
